FAERS Safety Report 12867219 (Version 1)
Quarter: 2016Q4

REPORT INFORMATION
  Report Type: Spontaneous
  Country: US (occurrence: US)
  Receive Date: 20161020
  Receipt Date: 20161020
  Transmission Date: 20170207
  Serious: No
  Sender: FDA-Public Use
  Company Number: US-JAZZ-2016-US-014506

PATIENT
  Sex: Female

DRUGS (29)
  1. LYRICA [Suspect]
     Active Substance: PREGABALIN
     Indication: PAIN
     Dosage: UNK
     Dates: start: 20160801
  2. VITAMIN C [Concomitant]
     Active Substance: ASCORBIC ACID
  3. SAVELLA TITRATION [Concomitant]
  4. ATROPINE SULATE [Concomitant]
     Active Substance: ATROPINE SULFATE
  5. ALPRAZOLAM. [Concomitant]
     Active Substance: ALPRAZOLAM
  6. CRESTOR [Concomitant]
     Active Substance: ROSUVASTATIN CALCIUM
  7. CALTRATE WITH VITAMIN D [Concomitant]
     Active Substance: CALCIUM CARBONATE\CHOLECALCIFEROL
  8. GEMFIBROZIL. [Concomitant]
     Active Substance: GEMFIBROZIL
  9. METRONIDAZOLE. [Concomitant]
     Active Substance: METRONIDAZOLE
  10. LIDODERM [Concomitant]
     Active Substance: LIDOCAINE
  11. RESTASIS [Concomitant]
     Active Substance: CYCLOSPORINE
  12. DUREZOL [Concomitant]
     Active Substance: DIFLUPREDNATE
  13. PROPRANOLOL [Concomitant]
     Active Substance: PROPRANOLOL\PROPRANOLOL HYDROCHLORIDE
  14. LIVALO [Concomitant]
     Active Substance: PITAVASTATIN CALCIUM
  15. CILOXAN [Concomitant]
     Active Substance: CIPROFLOXACIN HYDROCHLORIDE
  16. PRIMIDONE. [Concomitant]
     Active Substance: PRIMIDONE
  17. XYREM [Suspect]
     Active Substance: SODIUM OXYBATE
     Indication: FIBROMYALGIA
     Dosage: 2.25 G, BID
     Route: 048
     Dates: start: 200709, end: 200710
  18. XYREM [Suspect]
     Active Substance: SODIUM OXYBATE
     Dosage: DOSE ADJUSTMENTS
     Route: 048
     Dates: start: 200710, end: 201103
  19. XYREM [Suspect]
     Active Substance: SODIUM OXYBATE
     Dosage: 4.5 G, BID
     Route: 048
     Dates: start: 201103
  20. B COMPLEX WITH FOLIC ACID [Concomitant]
  21. MULTIVITAMIN [Concomitant]
     Active Substance: VITAMINS
  22. ILEVRO [Concomitant]
     Active Substance: NEPAFENAC
  23. NITROGLYCERIN. [Concomitant]
     Active Substance: NITROGLYCERIN
  24. L-GLUTAMINE [Concomitant]
  25. KRISTALOSE [Concomitant]
     Active Substance: LACTULOSE
  26. BESIVANCE [Concomitant]
     Active Substance: BESIFLOXACIN
  27. ZOLPIDEM TARTRATE. [Concomitant]
     Active Substance: ZOLPIDEM TARTRATE
  28. GLUCOSAMINE CHONDROITIN [Concomitant]
     Active Substance: CHONDROITIN SULFATE (BOVINE)\GLUCOSAMINE HYDROCHLORIDE
  29. SAVELLA [Concomitant]
     Active Substance: MILNACIPRAN HYDROCHLORIDE

REACTIONS (3)
  - Pain in extremity [Recovered/Resolved]
  - Insomnia [Not Recovered/Not Resolved]
  - Hypervigilance [Unknown]

NARRATIVE: CASE EVENT DATE: 2016
